FAERS Safety Report 24029948 (Version 1)
Quarter: 2024Q2

REPORT INFORMATION
  Report Type: Spontaneous
  Country: AR (occurrence: AR)
  Receive Date: 20240628
  Receipt Date: 20240628
  Transmission Date: 20240716
  Serious: Yes (Other)
  Sender: FDA-Public Use
  Company Number: AR-SANDOZ-SDZ2024AR061290

PATIENT
  Age: 3 Year
  Sex: Female

DRUGS (2)
  1. OMNITROPE [Suspect]
     Active Substance: SOMATROPIN
     Indication: Growth retardation
     Dosage: 0.3 UNK FREQUENCY 7
     Route: 058
     Dates: start: 20230601
  2. OMNITROPE [Suspect]
     Active Substance: SOMATROPIN
     Indication: Growth hormone deficiency

REACTIONS (2)
  - Developmental hip dysplasia [Unknown]
  - Developmental delay [Unknown]

NARRATIVE: CASE EVENT DATE: 20230701
